FAERS Safety Report 19513062 (Version 1)
Quarter: 2021Q3

REPORT INFORMATION
  Report Type: Spontaneous
  Country: US (occurrence: US)
  Receive Date: 20210709
  Receipt Date: 20210709
  Transmission Date: 20211014
  Serious: Yes (Hospitalization, Other)
  Sender: FDA-Public Use
  Company Number: US-AMGEN-USASP2021102115

PATIENT
  Age: 65 Year
  Sex: Male

DRUGS (17)
  1. TYLENOL EXTRA STRENGTH [Concomitant]
     Active Substance: ACETAMINOPHEN
     Indication: PAIN
     Dosage: 500 MILLIGRAM, Q8H
     Route: 048
     Dates: start: 20201202
  2. LOSARTAN. [Concomitant]
     Active Substance: LOSARTAN
     Dosage: 50 MILLIGRAM, QD
     Dates: start: 20210216
  3. AMLODIPINE [Concomitant]
     Active Substance: AMLODIPINE BESYLATE
     Dosage: 10 MILLIGRAM, QD
     Dates: start: 20201202
  4. IMODIUM A?D [Concomitant]
     Active Substance: LOPERAMIDE HYDROCHLORIDE
     Indication: DIARRHOEA
     Dosage: 4 MILLIGRAM
     Route: 048
     Dates: start: 20210126
  5. OXYCONTIN [Concomitant]
     Active Substance: OXYCODONE HYDROCHLORIDE
     Dosage: 7.5 MILLIGRAM, EVERY 4?6 HOURS AS NEEDED
     Route: 048
     Dates: start: 20210412
  6. MEDROL [Concomitant]
     Active Substance: METHYLPREDNISOLONE
     Dosage: UNK
     Dates: start: 20210416
  7. AMITRIPTYLINE [Concomitant]
     Active Substance: AMITRIPTYLINE
     Indication: NEURALGIA
     Dosage: 40 MILLIGRAM
     Route: 048
     Dates: start: 20210216
  8. FENTANYL. [Concomitant]
     Active Substance: FENTANYL
     Dosage: 75 UNK
     Dates: start: 20201211
  9. OXYCODONE [Concomitant]
     Active Substance: OXYCODONE
     Dosage: UNK
  10. OXYCODONE AND ACETAMINOPHEN [Concomitant]
     Active Substance: ACETAMINOPHEN\OXYCODONE HYDROCHLORIDE
     Dosage: UNK
  11. MVASI [Suspect]
     Active Substance: BEVACIZUMAB-AWWB
     Indication: COLON CANCER
     Dosage: UNK
     Route: 042
     Dates: start: 20210202
  12. LONSURF [Suspect]
     Active Substance: TIPIRACIL HYDROCHLORIDE\TRIFLURIDINE
     Indication: COLON CANCER METASTATIC
     Dosage: 60 MILLIGRAM, BID
     Route: 048
     Dates: start: 20210126
  13. ONDANSETRON HCL [Concomitant]
     Active Substance: ONDANSETRON HYDROCHLORIDE
     Indication: NAUSEA
     Dosage: 8 MILLIGRAM, Q8H
     Route: 048
     Dates: start: 20210126
  14. ONDANSETRON HCL [Concomitant]
     Active Substance: ONDANSETRON HYDROCHLORIDE
     Indication: VOMITING
  15. GABAPENTIN. [Concomitant]
     Active Substance: GABAPENTIN
     Dosage: UNK
  16. OXYCONTIN [Concomitant]
     Active Substance: OXYCODONE HYDROCHLORIDE
     Indication: PAIN
     Dosage: 7.5 MILLIGRAM, EVERY 4?6 HOURS AS NEEDED
     Route: 048
     Dates: start: 20210416
  17. LEVOFLOXACIN. [Concomitant]
     Active Substance: LEVOFLOXACIN
     Dosage: 71.42 UNK, QD
     Route: 048
     Dates: start: 20210312

REACTIONS (10)
  - Arthralgia [Unknown]
  - Anaemia [Unknown]
  - Dehydration [Unknown]
  - Disease progression [Unknown]
  - Asthenia [Unknown]
  - Haematuria [Unknown]
  - Pain in extremity [Unknown]
  - Neutropenia [Unknown]
  - Leukopenia [Unknown]
  - Fatigue [Unknown]

NARRATIVE: CASE EVENT DATE: 202104
